FAERS Safety Report 14812958 (Version 2)
Quarter: 2018Q4

REPORT INFORMATION
  Report Type: Spontaneous
  Country: FR (occurrence: FR)
  Receive Date: 20180426
  Receipt Date: 20181026
  Transmission Date: 20190204
  Serious: Yes (Other)
  Sender: FDA-Public Use
  Company Number: FR-MERCK KGAA-2046537

PATIENT
  Age: 62 Year
  Sex: Male

DRUGS (1)
  1. EUTHYROX [Suspect]
     Active Substance: LEVOTHYROXINE SODIUM
     Indication: PRODUCT USED FOR UNKNOWN INDICATION
     Dates: end: 201710

REACTIONS (24)
  - Oedema peripheral [Recovering/Resolving]
  - Urine protein/creatinine ratio increased [None]
  - Anxiety [None]
  - Insomnia [None]
  - Hypothyroidism [None]
  - Muscle spasms [Recovering/Resolving]
  - Low density lipoprotein decreased [None]
  - Varicose vein [None]
  - Erysipelas [None]
  - Wound [None]
  - Inflammation [None]
  - Blood thyroid stimulating hormone increased [None]
  - Fatigue [None]
  - Gait disturbance [None]
  - Mood altered [None]
  - Impatience [None]
  - Aggression [None]
  - Haematocrit decreased [None]
  - Red blood cell count decreased [None]
  - Joint range of motion decreased [None]
  - Social avoidant behaviour [None]
  - Asthenia [None]
  - Glycosylated haemoglobin increased [None]
  - Blood triglycerides increased [None]

NARRATIVE: CASE EVENT DATE: 20170506
